FAERS Safety Report 13022356 (Version 1)
Quarter: 2016Q4

REPORT INFORMATION
  Report Type: Spontaneous
  Country: US (occurrence: US)
  Receive Date: 20161213
  Receipt Date: 20161213
  Transmission Date: 20170207
  Serious: No
  Sender: FDA-Public Use
  Company Number: US-PFIZER INC-2016574933

PATIENT
  Age: 6 Decade
  Sex: Male

DRUGS (2)
  1. ARAVA [Suspect]
     Active Substance: LEFLUNOMIDE
  2. XELJANZ XR [Suspect]
     Active Substance: TOFACITINIB CITRATE

REACTIONS (3)
  - Fatigue [Unknown]
  - Arthralgia [Unknown]
  - Condition aggravated [Unknown]
